FAERS Safety Report 13853281 (Version 1)
Quarter: 2017Q3

REPORT INFORMATION
  Report Type: Spontaneous
  Country: US (occurrence: US)
  Receive Date: 20170809
  Receipt Date: 20170809
  Transmission Date: 20171127
  Serious: No
  Sender: FDA-Public Use
  Company Number: GXBR2017US001320

PATIENT
  Sex: Male
  Weight: 74.83 kg

DRUGS (1)
  1. ZINC OXIDE. [Suspect]
     Active Substance: ZINC OXIDE
     Indication: HYPERAESTHESIA
     Dosage: 1 DF, QD
     Route: 061
     Dates: start: 20170401, end: 20170403

REACTIONS (3)
  - Discomfort [Not Recovered/Not Resolved]
  - Skin irritation [Not Recovered/Not Resolved]
  - Skin burning sensation [Not Recovered/Not Resolved]
